FAERS Safety Report 20090915 (Version 1)
Quarter: 2021Q4

REPORT INFORMATION
  Report Type: Spontaneous
  Country: US (occurrence: US)
  Receive Date: 20211119
  Receipt Date: 20211119
  Transmission Date: 20220303
  Serious: Yes (Other)
  Sender: FDA-Public Use
  Company Number: US-Stemline Therapeutics, Inc.-2021ST000067

PATIENT
  Sex: Male

DRUGS (1)
  1. ELZONRIS [Suspect]
     Active Substance: TAGRAXOFUSP-ERZS
     Indication: Blastic plasmacytoid dendritic cell neoplasia
     Dosage: 2 VIALS; CYCLE 1
     Route: 042
     Dates: start: 202110, end: 2021

REACTIONS (7)
  - Deep vein thrombosis [Unknown]
  - Pulmonary embolism [Unknown]
  - Pneumonia [Unknown]
  - Capillary leak syndrome [Unknown]
  - Hypoalbuminaemia [Unknown]
  - Coombs test positive [Unknown]
  - Hypotension [Unknown]

NARRATIVE: CASE EVENT DATE: 20210101
